FAERS Safety Report 4374064-8 (Version None)
Quarter: 2004Q2

REPORT INFORMATION
  Report Type: 
  Country: None (occurrence: None)
  Receive Date: 20040602
  Receipt Date: 20040107
  Transmission Date: 20050107
  Serious: Yes (Hospitalization)
  Sender: FDA-Public Use
  Company Number: 1505

PATIENT
  Age: 60 Year
  Sex: Female
  Weight: 134.2647 kg

DRUGS (12)
  1. AVINZA [Suspect]
     Indication: SPINAL OSTEOARTHRITIS
     Dosage: 30 MG QD PO
     Route: 048
     Dates: start: 20031201, end: 20031205
  2. ATORVASTATIN CALCIUM [Concomitant]
  3. CHOLESTYRAMINE POWDER [Concomitant]
  4. FUROSEMIDE [Concomitant]
  5. GLYBURIDE/METFORMIN HYDROCHLORIDE [Concomitant]
  6. METOPROLOL SUCCINATE [Concomitant]
  7. NAPROXEN [Concomitant]
  8. NATEGLINIDE [Concomitant]
  9. OMEPRAZOLE [Concomitant]
  10. PAROXETINE HYDROCHLORIDE [Concomitant]
  11. POTASSIUM CHLORIDE [Concomitant]
  12. RAMIPRIL [Concomitant]

REACTIONS (4)
  - LIVER FUNCTION TEST ABNORMAL [None]
  - NAUSEA [None]
  - PALPITATIONS [None]
  - VOMITING [None]
